FAERS Safety Report 4947709-9 (Version None)
Quarter: 2006Q1

REPORT INFORMATION
  Report Type: 
  Country: None (occurrence: None)
  Receive Date: 20060320
  Receipt Date: 20060309
  Transmission Date: 20060701
  Serious: Yes (Other)
  Sender: FDA-Public Use
  Company Number: 2006PK00507

PATIENT
  Age: 64 Year
  Sex: Male

DRUGS (8)
  1. SEROQUEL [Suspect]
     Indication: SCHIZOPHRENIA
     Dosage: UPTITRATION FROM 300 MG TO 600 MG DAILY
     Route: 048
  2. SEROQUEL [Suspect]
     Route: 048
  3. TRIAMTERENE AND HYDROCHLOROTHIAZIDE [Concomitant]
     Route: 048
  4. PRAVIDEL [Concomitant]
     Route: 048
  5. NEXIUM [Concomitant]
     Route: 048
  6. SPASMEX [Concomitant]
     Route: 048
  7. L-THYROXIN [Concomitant]
     Route: 048
  8. NYSTATIN [Concomitant]

REACTIONS (1)
  - THROMBOCYTOPENIA [None]
